FAERS Safety Report 15311835 (Version 3)
Quarter: 2018Q4

REPORT INFORMATION
  Report Type: Spontaneous
  Country: DE (occurrence: DE)
  Receive Date: 20180823
  Receipt Date: 20181001
  Transmission Date: 20190204
  Serious: Yes (Congenital Anomaly)
  Sender: FDA-Public Use
  Company Number: DE-PFIZER INC-2018333177

PATIENT
  Age: 1 Day
  Sex: Male
  Weight: 2.68 kg

DRUGS (4)
  1. METOPROLOL. [Concomitant]
     Active Substance: METOPROLOL
     Indication: TACHYCARDIA
     Dosage: 47.5 MG, 1X/DAY
     Route: 064
  2. FEMIBION 1 [Concomitant]
     Indication: PROPHYLAXIS OF NEURAL TUBE DEFECT
     Dosage: 0.8 MG, DAILY
     Route: 064
     Dates: start: 20160901, end: 20170426
  3. PROTAPHANE [Concomitant]
     Active Substance: INSULIN HUMAN
     Indication: GESTATIONAL DIABETES
     Route: 064
  4. VENLAFAXINE HCL [Suspect]
     Active Substance: VENLAFAXINE HYDROCHLORIDE
     Indication: ANXIETY DISORDER
     Dosage: 150 [MG/D]/ INITIAL 125MG/D,  DOSAGE INCREASE 150MG/D, NOT  SURE IF DOSAGE REDUCTION BEFORE DELIVER
     Route: 064
     Dates: start: 20160901, end: 20170426

REACTIONS (5)
  - Maternal exposure during pregnancy [Not Recovered/Not Resolved]
  - Patent ductus arteriosus [Recovered/Resolved]
  - Meningocele [Recovered/Resolved with Sequelae]
  - Microtia [Not Recovered/Not Resolved]
  - External auditory canal atresia [Not Recovered/Not Resolved]

NARRATIVE: CASE EVENT DATE: 20160901
